FAERS Safety Report 12911500 (Version 2)
Quarter: 2016Q4

REPORT INFORMATION
  Report Type: Spontaneous
  Country: BR (occurrence: BR)
  Receive Date: 20161104
  Receipt Date: 20161108
  Transmission Date: 20170207
  Serious: Yes (Other)
  Sender: FDA-Public Use
  Company Number: PHHY2016BR149610

PATIENT
  Sex: Male
  Weight: 4.45 kg

DRUGS (1)
  1. JULIET [Suspect]
     Active Substance: DESOGESTREL
     Indication: PRODUCT USED FOR UNKNOWN INDICATION
     Route: 063
     Dates: end: 20161025

REACTIONS (5)
  - Haematochezia [Recovering/Resolving]
  - Abdominal distension [Recovering/Resolving]
  - Pain [Recovering/Resolving]
  - Swelling [Unknown]
  - Exposure during breast feeding [Unknown]
